FAERS Safety Report 7941794-8 (Version None)
Quarter: 2011Q4

REPORT INFORMATION
  Report Type: 
  Country: None (occurrence: None)
  Receive Date: 20111128
  Receipt Date: 20111122
  Transmission Date: 20120403
  Serious: Yes (Other)
  Sender: FDA-Public Use
  Company Number: JP-PFIZER INC-2011273847

PATIENT
  Age: 27 Year
  Sex: Female

DRUGS (3)
  1. PREDNISOLONE [Suspect]
     Dosage: 60 MG, 1X/DAY; FOR ONE MONTH
     Route: 048
  2. PLANOVAL [Suspect]
     Indication: OFF LABEL USE
     Route: 048
  3. PLANOVAL [Suspect]
     Indication: OVULATION INDUCTION

REACTIONS (1)
  - RENAL VEIN THROMBOSIS [None]
